FAERS Safety Report 7636463-8 (Version None)
Quarter: 2011Q3

REPORT INFORMATION
  Report Type: 
  Country: None (occurrence: None)
  Receive Date: 20110719
  Receipt Date: 20110705
  Transmission Date: 20111222
  Serious: Yes (Hospitalization)
  Sender: FDA-Public Use
  Company Number: 100002158

PATIENT
  Age: 17 Year
  Sex: Female

DRUGS (5)
  1. CITALOPRAM HYDROBROMIDE [Suspect]
     Dosage: 20 MG(20 MG, 1 IN 1 D), ORAL
     Route: 048
  2. PEGLYTE (SODIUM BICARBONATE) (POWDER) [Concomitant]
  3. BACLOFEN [Concomitant]
  4. TRAZODONE HCL [Suspect]
     Dosage: 50 MG, AS REQUIRED, ORAL
     Route: 048
  5. CLONAZEPAM [Concomitant]

REACTIONS (4)
  - ALANINE AMINOTRANSFERASE INCREASED [None]
  - SEROTONIN SYNDROME [None]
  - BLOOD LACTATE DEHYDROGENASE INCREASED [None]
  - ASPARTATE AMINOTRANSFERASE INCREASED [None]
